FAERS Safety Report 18987852 (Version 3)
Quarter: 2021Q2

REPORT INFORMATION
  Report Type: Spontaneous
  Country: US (occurrence: US)
  Receive Date: 20210309
  Receipt Date: 20210402
  Transmission Date: 20210717
  Serious: Yes (Hospitalization)
  Sender: FDA-Public Use
  Company Number: US-ALKERMES INC.-ALK-2021-001098

PATIENT
  Age: 36 Year
  Sex: Female
  Weight: 94.92 kg

DRUGS (11)
  1. TOPIRAMATE. [Concomitant]
     Active Substance: TOPIRAMATE
     Dosage: 25 MILLIGRAM, BID
     Route: 065
     Dates: start: 20210310, end: 20210310
  2. ARISTADA [Suspect]
     Active Substance: ARIPIPRAZOLE LAUROXIL
     Dosage: 1064 MILLIGRAM, Q8WK
     Route: 030
  3. ARISTADA [Suspect]
     Active Substance: ARIPIPRAZOLE LAUROXIL
     Dosage: UNK UNK, QMO
     Route: 030
     Dates: start: 201908
  4. ARISTADA [Suspect]
     Active Substance: ARIPIPRAZOLE LAUROXIL
     Indication: SCHIZOPHRENIA
     Dosage: 882 MILLIGRAM, QMO
     Route: 030
     Dates: start: 20210305
  5. CLONAZEPAM. [Concomitant]
     Active Substance: CLONAZEPAM
     Indication: ANXIETY
     Dosage: 0.5 MILLIGRAM, TID
     Route: 065
  6. HYDROXYZINE PAMOATE. [Concomitant]
     Active Substance: HYDROXYZINE PAMOATE
     Indication: ANXIETY
     Dosage: 50 MILLIGRAM, QID
     Route: 065
  7. QUETIAPINE. [Concomitant]
     Active Substance: QUETIAPINE
     Indication: PRODUCT USED FOR UNKNOWN INDICATION
     Dosage: 600 MILLIGRAM, QHS
     Route: 065
     Dates: start: 20210223
  8. ANTIPSYCHOTICS [Suspect]
     Active Substance: UNSPECIFIED INGREDIENT
     Indication: PRODUCT USED FOR UNKNOWN INDICATION
     Dosage: UNK
     Route: 065
  9. TOPIRAMATE. [Concomitant]
     Active Substance: TOPIRAMATE
     Indication: PRODUCT USED FOR UNKNOWN INDICATION
     Dosage: 100 MILLIGRAM, BID
     Route: 065
     Dates: start: 20210314
  10. QUETIAPINE. [Concomitant]
     Active Substance: QUETIAPINE
     Dosage: 400 MILLIGRAM
     Route: 065
     Dates: start: 20210211, end: 20210223
  11. ZOLPIDEM [Concomitant]
     Active Substance: ZOLPIDEM TARTRATE
     Indication: SLEEP DISORDER
     Dosage: 10 MILLIGRAM, QHS
     Route: 065

REACTIONS (10)
  - Delusion [Unknown]
  - Anxiety [Recovering/Resolving]
  - Restless legs syndrome [Recovering/Resolving]
  - Mental disorder [Recovered/Resolved]
  - Agitation [Recovering/Resolving]
  - Sleep disorder [Recovered/Resolved]
  - Akathisia [Recovering/Resolving]
  - Schizophrenia [Not Recovered/Not Resolved]
  - Hallucination [Unknown]
  - Paranoia [Unknown]

NARRATIVE: CASE EVENT DATE: 20210303
